FAERS Safety Report 7982577-2 (Version None)
Quarter: 2011Q4

REPORT INFORMATION
  Report Type: 
  Country: None (occurrence: None)
  Receive Date: 20111215
  Receipt Date: 20111212
  Transmission Date: 20120403
  Serious: Yes (Death)
  Sender: FDA-Public Use
  Company Number: US-GLAXOSMITHKLINE-A0907244A

PATIENT
  Age: 51 Year
  Sex: Male

DRUGS (1)
  1. PAXIL CR [Suspect]
     Indication: PRODUCT USED FOR UNKNOWN INDICATION
     Dosage: 12.5MG UNKNOWN
     Route: 048
     Dates: start: 20081201, end: 20081201

REACTIONS (3)
  - COMPLETED SUICIDE [None]
  - ABNORMAL DREAMS [None]
  - SUICIDAL IDEATION [None]
